FAERS Safety Report 5202849-4 (Version None)
Quarter: 2006Q4

REPORT INFORMATION
  Report Type: 
  Country: None (occurrence: None)
  Receive Date: 20061016
  Receipt Date: 20060913
  Transmission Date: 20070319
  Serious: No
  Sender: FDA-Public Use
  Company Number: 2006SP003282

PATIENT
  Sex: Male

DRUGS (2)
  1. LUNESTA [Suspect]
     Dosage: ORAL
     Route: 048
     Dates: start: 20060901
  2. TOPROL-XL [Concomitant]

REACTIONS (2)
  - ASTHENIA [None]
  - FATIGUE [None]
